FAERS Safety Report 9604176 (Version 2)
Quarter: 2013Q4

REPORT INFORMATION
  Report Type: Spontaneous
  Country: AU (occurrence: AU)
  Receive Date: 20131008
  Receipt Date: 20131106
  Transmission Date: 20140711
  Serious: Yes (Hospitalization)
  Sender: FDA-Public Use
  Company Number: AU-BRISTOL-MYERS SQUIBB COMPANY-19496579

PATIENT
  Age: 72 Year
  Sex: Female

DRUGS (3)
  1. BYETTA [Suspect]
     Route: 058
  2. METFORMIN [Concomitant]
  3. DIAMICRON [Concomitant]

REACTIONS (4)
  - Sepsis [Recovered/Resolved]
  - Cholecystitis [Recovered/Resolved]
  - Pouchitis [Unknown]
  - Drug ineffective [Unknown]
